FAERS Safety Report 13114693 (Version 1)
Quarter: 2017Q1

REPORT INFORMATION
  Report Type: Report from Study
  Country: NL (occurrence: NL)
  Receive Date: 20170113
  Receipt Date: 20170113
  Transmission Date: 20170428
  Serious: Yes (Hospitalization, Other)
  Sender: FDA-Public Use
  Company Number: NL-AMGEN-NLDSL2017003633

PATIENT
  Age: 52 Year
  Sex: Female

DRUGS (1)
  1. NEULASTA [Suspect]
     Active Substance: PEGFILGRASTIM
     Indication: NEUTROPENIA
     Dosage: 0.6 ML, Q3WK (1.00 STUKS)
     Route: 058

REACTIONS (3)
  - Gastrointestinal haemorrhage [Unknown]
  - Dehydration [Unknown]
  - Hospitalisation [Unknown]

NARRATIVE: CASE EVENT DATE: 20161220
